FAERS Safety Report 10067387 (Version 1)
Quarter: 2014Q2

REPORT INFORMATION
  Report Type: Spontaneous
  Country: US (occurrence: None)
  Receive Date: 20140408
  Receipt Date: 20140408
  Transmission Date: 20141212
  Serious: Yes (Other)
  Sender: FDA-Public Use
  Company Number: None

PATIENT
  Age: 59 Year
  Sex: Male

DRUGS (1)
  1. MARCAINE SPINAL 0.75% + 8.25% DEXTROSE [Suspect]
     Indication: SPINAL ANAESTHESIA
     Dosage: 2 ML ONCE INTRATHECAL
     Route: 037

REACTIONS (1)
  - Incision site pain [None]
